FAERS Safety Report 7344666-5 (Version None)
Quarter: 2011Q1

REPORT INFORMATION
  Report Type: 
  Country: None (occurrence: None)
  Receive Date: 20110228
  Receipt Date: 20110214
  Transmission Date: 20110831
  Serious: Yes (Disabling)
  Sender: FDA-Public Use
  Company Number: PHHY2010JP76504

PATIENT
  Age: 84 Year
  Sex: Male

DRUGS (14)
  1. CRAVIT [Concomitant]
  2. KIPRES [Concomitant]
  3. VISUDYNE [Suspect]
     Indication: MACULAR DEGENERATION
     Dosage: 6 MG/ML ONCE IV
     Route: 042
     Dates: start: 20091014, end: 20091014
  4. LUCENTIS [Suspect]
     Indication: MACULAR DEGENERATION
     Dosage: 0.05 ML DAILY EY
     Dates: start: 20101013, end: 20101013
  5. LUCENTIS [Suspect]
     Indication: MACULAR DEGENERATION
     Dosage: 0.05 ML DAILY EY
     Dates: start: 20091014, end: 20091014
  6. VISUDYNE [Suspect]
     Indication: MACULAR DEGENERATION
     Dosage: 5 MG/M^2 ONCE IV
     Route: 042
     Dates: start: 20101013, end: 20101013
  7. ADONA [Concomitant]
  8. MEPTIN [Concomitant]
  9. FLENIED [Concomitant]
  10. FAMOSTAGINE [Concomitant]
  11. KENACORT [Concomitant]
  12. MUCOSTA [Concomitant]
  13. VIGAMOX [Concomitant]
  14. CLARITHROMYCIN [Concomitant]

REACTIONS (4)
  - RETINAL SCAR [None]
  - RETINAL HAEMORRHAGE [None]
  - RETINAL OEDEMA [None]
  - RETINAL ISCHAEMIA [None]
